FAERS Safety Report 21967058 (Version 2)
Quarter: 2023Q1

REPORT INFORMATION
  Report Type: Report from Study
  Country: US (occurrence: US)
  Receive Date: 20230208
  Receipt Date: 20230210
  Transmission Date: 20230418
  Serious: Yes (Death, Hospitalization, Other)
  Sender: FDA-Public Use
  Company Number: US-BRISTOL-MYERS SQUIBB COMPANY-2023-016245

PATIENT
  Age: 72 Year
  Sex: Male
  Weight: 83.91 kg

DRUGS (2)
  1. OPDIVO [Suspect]
     Active Substance: NIVOLUMAB
     Indication: Lung neoplasm malignant
     Route: 041
     Dates: start: 2018, end: 202211
  2. OPDIVO [Suspect]
     Active Substance: NIVOLUMAB
     Indication: Breast cancer

REACTIONS (5)
  - Myocardial infarction [Unknown]
  - Drug ineffective [Unknown]
  - Metastases to central nervous system [Unknown]
  - Tumour necrosis [Unknown]
  - Death [Fatal]

NARRATIVE: CASE EVENT DATE: 20210101
